FAERS Safety Report 8522835 (Version 3)
Quarter: 2014Q2

REPORT INFORMATION
  Report Type: Spontaneous
  Country: US (occurrence: US)
  Receive Date: 20120419
  Receipt Date: 20130810
  Transmission Date: 20141212
  Serious: Yes (Death, Hospitalization)
  Sender: FDA-Public Use
  Company Number: US-BAXTER-2012BAX000377

PATIENT
  Sex: Male

DRUGS (3)
  1. DIANEAL LOW CALCIUM [Suspect]
     Indication: PERITONEAL DIALYSIS
     Route: 033
     Dates: end: 20110822
  2. DIANEAL LOW CALCIUM [Suspect]
     Indication: PERITONEAL DIALYSIS
     Route: 033
     Dates: end: 20110822
  3. EXTRANEAL [Suspect]
     Indication: PERITONEAL DIALYSIS
     Route: 033

REACTIONS (10)
  - Respiratory failure [Fatal]
  - Peritonitis [Fatal]
  - Sepsis [Fatal]
  - Renal failure chronic [Fatal]
  - Diabetes mellitus [Fatal]
  - Renal failure [Fatal]
  - Clostridium difficile infection [Recovering/Resolving]
  - Convulsion [Unknown]
  - Failure to thrive [Unknown]
  - Depression [Unknown]
